FAERS Safety Report 21353633 (Version 1)
Quarter: 2022Q3

REPORT INFORMATION
  Report Type: Spontaneous
  Country: US (occurrence: None)
  Receive Date: 20220919
  Receipt Date: 20220919
  Transmission Date: 20221026
  Serious: No
  Sender: FDA-Public Use
  Company Number: None

PATIENT
  Age: 55 Year
  Sex: Male
  Weight: 119.75 kg

DRUGS (1)
  1. COSENTYX [Suspect]
     Active Substance: SECUKINUMAB
     Indication: Ankylosing spondylitis
     Dosage: FREQUENCY : MONTHLY;?INJECT 300MG (2 PENS) SUBCUTANEOUSLY EVERY 4 WEEKS IN?THE ABDOMEN, THIGH, OR UP
     Route: 058
     Dates: start: 202204

REACTIONS (1)
  - Dehydration [None]
